FAERS Safety Report 18972838 (Version 1)
Quarter: 2021Q1

REPORT INFORMATION
  Report Type: Spontaneous
  Country: US (occurrence: US)
  Receive Date: 20210305
  Receipt Date: 20210305
  Transmission Date: 20210420
  Serious: Yes (Other)
  Sender: FDA-Public Use
  Company Number: None

PATIENT
  Age: 29 Year
  Sex: Female
  Weight: 50.4 kg

DRUGS (1)
  1. CLINDAMYCIN PHOSPHATE VAGINAL CREAM USP 2% [Suspect]
     Active Substance: CLINDAMYCIN PHOSPHATE
     Indication: BACTERIAL VAGINOSIS
     Dosage: ?          QUANTITY:40 SUPPOSITORY(IES);OTHER ROUTE:BOTH ORALLY AND VAGINALLY?
     Dates: start: 20210301, end: 20210304

REACTIONS (3)
  - Thrombosis [None]
  - Menorrhagia [None]
  - Abdominal pain [None]

NARRATIVE: CASE EVENT DATE: 20210304
